FAERS Safety Report 11037820 (Version 5)
Quarter: 2016Q3

REPORT INFORMATION
  Report Type: Spontaneous
  Country: US (occurrence: US)
  Receive Date: 20150416
  Receipt Date: 20160725
  Transmission Date: 20161109
  Serious: Yes (Other)
  Sender: FDA-Public Use
  Company Number: US-009507513-1504USA012362

PATIENT
  Sex: Male
  Weight: 100.23 kg

DRUGS (5)
  1. PROPECIA [Suspect]
     Active Substance: FINASTERIDE
     Indication: ALOPECIA
     Dosage: 1 MG, QD
     Route: 048
     Dates: start: 20070329, end: 20070412
  2. METFORMIN [Concomitant]
     Active Substance: METFORMIN HYDROCHLORIDE
     Indication: TYPE 2 DIABETES MELLITUS
     Dosage: UNK, UNKNOWN
     Route: 065
     Dates: start: 200412
  3. PROPECIA [Suspect]
     Active Substance: FINASTERIDE
     Indication: ANDROGENETIC ALOPECIA
  4. GLIPIZIDE. [Concomitant]
     Active Substance: GLIPIZIDE
     Indication: TYPE 2 DIABETES MELLITUS
     Dosage: UNK, UNKNOWN
     Route: 065
     Dates: start: 200412
  5. LISINOPRIL. [Concomitant]
     Active Substance: LISINOPRIL
     Indication: TYPE 2 DIABETES MELLITUS
     Dosage: UNK, UNKNOWN
     Route: 048
     Dates: start: 200412

REACTIONS (27)
  - Brain injury [Not Recovered/Not Resolved]
  - Endocrine disorder [Not Recovered/Not Resolved]
  - Testicular atrophy [Not Recovered/Not Resolved]
  - Penile size reduced [Not Recovered/Not Resolved]
  - Heart rate increased [Unknown]
  - Hormone level abnormal [Not Recovered/Not Resolved]
  - Erectile dysfunction [Not Recovered/Not Resolved]
  - Sexual dysfunction [Not Recovered/Not Resolved]
  - Fear [Unknown]
  - Rash vesicular [Unknown]
  - Orchitis [Unknown]
  - Blood testosterone decreased [Unknown]
  - Adverse drug reaction [Unknown]
  - Dysuria [Unknown]
  - Loss of libido [Not Recovered/Not Resolved]
  - Penis injury [Not Recovered/Not Resolved]
  - Anxiety [Not Recovered/Not Resolved]
  - Hypertension [Unknown]
  - Chest pain [Unknown]
  - Painful ejaculation [Not Recovered/Not Resolved]
  - Movement disorder [Unknown]
  - Depression [Not Recovered/Not Resolved]
  - Ejaculation disorder [Not Recovered/Not Resolved]
  - Semen volume decreased [Unknown]
  - Diabetes mellitus [Unknown]
  - Panic attack [Unknown]
  - Testicular pain [Recovering/Resolving]

NARRATIVE: CASE EVENT DATE: 2007
